FAERS Safety Report 9961433 (Version 1)
Quarter: 2014Q1

REPORT INFORMATION
  Report Type: Spontaneous
  Country: US (occurrence: None)
  Receive Date: 20140304
  Receipt Date: 20140304
  Transmission Date: 20141002
  Serious: Yes (Hospitalization)
  Sender: FDA-Public Use
  Company Number: None

PATIENT
  Age: 84 Year
  Sex: Male

DRUGS (2)
  1. CARVEDILOL [Suspect]
     Indication: HYPERTENSION
     Route: 048
     Dates: start: 20121019, end: 20131202
  2. CARVEDILOL [Suspect]
     Indication: ATRIAL FIBRILLATION
     Route: 048
     Dates: start: 20121019, end: 20131202

REACTIONS (2)
  - Orthostatic hypotension [None]
  - Syncope [None]
